FAERS Safety Report 22304050 (Version 1)
Quarter: 2023Q2

REPORT INFORMATION
  Report Type: Spontaneous
  Country: US (occurrence: None)
  Receive Date: 20230509
  Receipt Date: 20230509
  Transmission Date: 20230722
  Serious: Yes (Hospitalization)
  Sender: FDA-Public Use
  Company Number: None

PATIENT
  Age: 70 Year
  Sex: Male
  Weight: 110.25 kg

DRUGS (2)
  1. REMICADE [Suspect]
     Active Substance: INFLIXIMAB
     Indication: Antiinflammatory therapy
     Dosage: OTHER ROUTE : INFUSION;?
     Route: 050
     Dates: start: 20230410, end: 20230410
  2. INSULIN NOS [Concomitant]
     Active Substance: INSULIN NOS

REACTIONS (12)
  - Infusion related reaction [None]
  - Infusion site swelling [None]
  - Peripheral swelling [None]
  - Peripheral swelling [None]
  - Hypoaesthesia [None]
  - Headache [None]
  - Vision blurred [None]
  - Dyspnoea [None]
  - Hemiparesis [None]
  - Blood pressure increased [None]
  - Blood glucose increased [None]
  - Inflammation [None]

NARRATIVE: CASE EVENT DATE: 20230410
